FAERS Safety Report 11692339 (Version 1)
Quarter: 2015Q4

REPORT INFORMATION
  Report Type: Report from Study
  Country: US (occurrence: US)
  Receive Date: 20151103
  Receipt Date: 20151103
  Transmission Date: 20160304
  Serious: Yes (Hospitalization)
  Sender: FDA-Public Use
  Company Number: PHEH2015US021787

PATIENT
  Sex: Female

DRUGS (1)
  1. GLEEVEC [Suspect]
     Active Substance: IMATINIB MESYLATE
     Indication: GASTRIC NEOPLASM
     Dosage: 400 MG, QD
     Route: 048

REACTIONS (2)
  - Haemorrhagic cyst [Recovered/Resolved]
  - Off label use [Unknown]
